FAERS Safety Report 18595529 (Version 4)
Quarter: 2021Q2

REPORT INFORMATION
  Report Type: Spontaneous
  Country: US (occurrence: US)
  Receive Date: 20201209
  Receipt Date: 20210622
  Transmission Date: 20210717
  Serious: Yes (Other)
  Sender: FDA-Public Use
  Company Number: US-PFIZER INC-2020482554

PATIENT
  Age: 63 Year
  Sex: Female
  Weight: 113.38 kg

DRUGS (20)
  1. CALCIUM CARBONATE. [Concomitant]
     Active Substance: CALCIUM CARBONATE
     Dosage: UNK
  2. ROSUVASTATIN. [Concomitant]
     Active Substance: ROSUVASTATIN
     Dosage: UNK
  3. ROSUVASTATIN CALCIUM. [Concomitant]
     Active Substance: ROSUVASTATIN CALCIUM
     Dosage: UNK
  4. PROCHLORPERAZINE. [Concomitant]
     Active Substance: PROCHLORPERAZINE
     Dosage: UNK
  5. VITAMIN D3 [Concomitant]
     Active Substance: CHOLECALCIFEROL
     Dosage: UNK
  6. PERCOCET [Concomitant]
     Active Substance: ACETAMINOPHEN\OXYCODONE HYDROCHLORIDE
     Dosage: UNK
  7. ONDANSETRON [Concomitant]
     Active Substance: ONDANSETRON
     Dosage: UNK
  8. DIAZEPAM. [Concomitant]
     Active Substance: DIAZEPAM
     Dosage: UNK
  9. IBRANCE [Suspect]
     Active Substance: PALBOCICLIB
     Dosage: 125 MG, CYCLIC (DAILY, 21 DAYS, 7 DAYS OFF/ 21 OUT OF 28 DAYS)
     Route: 048
     Dates: start: 20201124
  10. OXYCODONE [Concomitant]
     Active Substance: OXYCODONE
     Dosage: UNK
  11. POTASSIUM CHLORIDE. [Concomitant]
     Active Substance: POTASSIUM CHLORIDE
     Dosage: UNK
  12. LOSARTAN AND HYDROCHLOROTHIAZIDE [Concomitant]
     Active Substance: HYDROCHLOROTHIAZIDE\LOSARTAN POTASSIUM
     Dosage: UNK
  13. NYSTATIN. [Concomitant]
     Active Substance: NYSTATIN
     Dosage: UNK
  14. FLUCONAZOLE. [Concomitant]
     Active Substance: FLUCONAZOLE
  15. LEVOFLOXACIN. [Concomitant]
     Active Substance: LEVOFLOXACIN
  16. IBRANCE [Suspect]
     Active Substance: PALBOCICLIB
     Indication: BREAST CANCER METASTATIC
     Dosage: 125 MG, CYCLIC (DAILY, 21 DAYS, 7 DAYS OFF/ 21 OUT OF 28 DAYS)
     Route: 048
     Dates: start: 20201124
  17. ZOMETA [Concomitant]
     Active Substance: ZOLEDRONIC ACID
     Dosage: UNK
  18. IBRANCE [Suspect]
     Active Substance: PALBOCICLIB
     Dosage: 125 MG, CYCLIC (DAILY, 21 DAYS, 7 DAYS OFF/ 21 OUT OF 28 DAYS)
     Route: 048
     Dates: start: 20201124
  19. LETROZOLE. [Concomitant]
     Active Substance: LETROZOLE
     Dosage: UNK
  20. INVOKANA [Concomitant]
     Active Substance: CANAGLIFLOZIN
     Dosage: UNK

REACTIONS (6)
  - Blood potassium decreased [Recovered/Resolved]
  - Fatigue [Unknown]
  - Candida infection [Unknown]
  - Visual impairment [Recovering/Resolving]
  - Taste disorder [Unknown]
  - Transient ischaemic attack [Unknown]

NARRATIVE: CASE EVENT DATE: 2020
